FAERS Safety Report 6024742-X (Version None)
Quarter: 2008Q4

REPORT INFORMATION
  Report Type: 
  Country: None (occurrence: None)
  Receive Date: 20081223
  Receipt Date: 20081218
  Transmission Date: 20090506
  Serious: Yes (Hospitalization)
  Sender: FDA-Public Use
  Company Number: DSA_32945_2008

PATIENT
  Sex: Female

DRUGS (6)
  1. LORAZEPAM [Suspect]
     Dosage: 12 MG 1X, 12 TABLETS (OVERDOSE AMOUNT 12 MG) (ORAL)
     Route: 048
     Dates: start: 20081218, end: 20081218
  2. CITALOPRAM HYDROBROMIDE [Suspect]
     Dosage: 480 MG 1X, 12 TABLETS (OVERDOSE AMOUNT 48 MG) (ORAL)
     Route: 048
     Dates: start: 20081218, end: 20081218
  3. DOMINAL /00018902/ (DOMINAL-PROTHIPENDYL HYDROCHLORIDE) 160 MG (NOT SP [Suspect]
     Dosage: 2240 MG 1X, 14 TABLETS (OVERDOSE AMOUNT 2240 MG) ORAL)
     Route: 048
     Dates: start: 20081218, end: 20081218
  4. NOVALGIN /00039501/ (NOVALGIN-METAMIZOE SODIUM) 500 MG (NOT SPECIFIED) [Suspect]
     Dosage: 3000 MG 1X, 6 TABLETS (OVERDOSE AMOUNT 3000 MG) ORAL)
     Route: 048
     Dates: start: 20081218, end: 20081218
  5. PARACETAMOL (PARACETAMOL) 500 MG [Suspect]
     Dosage: 1000 MG 1X, 20 TABLETS (OVERDOSE AMOUNT 10000 MG) ORAL)
     Route: 048
     Dates: start: 20081218, end: 20081218
  6. ZOPICLONE (ZOPICLONE) 7.5 MG [Suspect]
     Dosage: 52.5 MG 1X, 7 TABLETS (OVERDOSE AMOUNT 52.5MG) ORAL)
     Route: 048
     Dates: start: 20081218, end: 20081218

REACTIONS (6)
  - HYPOTENSION [None]
  - INTENTIONAL OVERDOSE [None]
  - MULTIPLE DRUG OVERDOSE INTENTIONAL [None]
  - SOMNOLENCE [None]
  - SUICIDE ATTEMPT [None]
  - VOMITING [None]
